FAERS Safety Report 11685362 (Version 1)
Quarter: 2015Q4

REPORT INFORMATION
  Report Type: Report from Study
  Country: CA (occurrence: CA)
  Receive Date: 20151030
  Receipt Date: 20151030
  Transmission Date: 20160304
  Serious: Yes (Hospitalization)
  Sender: FDA-Public Use
  Company Number: CA-ROCHE-1394168

PATIENT
  Age: 11 Year
  Sex: Male

DRUGS (3)
  1. OMEPRAZOLE. [Concomitant]
     Active Substance: OMEPRAZOLE
  2. PULMOZYME [Suspect]
     Active Substance: DORNASE ALFA
     Indication: CYSTIC FIBROSIS
     Route: 050
     Dates: start: 20140211
  3. COTAZYM [Concomitant]
     Active Substance: PANCRELIPASE

REACTIONS (2)
  - Weight increased [Unknown]
  - Lung disorder [Unknown]

NARRATIVE: CASE EVENT DATE: 20140428
